FAERS Safety Report 22321570 (Version 3)
Quarter: 2024Q1

REPORT INFORMATION
  Report Type: Spontaneous
  Country: JP (occurrence: JP)
  Receive Date: 20230515
  Receipt Date: 20240306
  Transmission Date: 20240409
  Serious: Yes (Hospitalization)
  Sender: FDA-Public Use
  Company Number: JP-ABBVIE-4766331

PATIENT
  Age: 43 Year
  Sex: Male
  Weight: 75 kg

DRUGS (17)
  1. HUMIRA [Suspect]
     Active Substance: ADALIMUMAB
     Indication: Ankylosing spondylitis
     Route: 058
     Dates: start: 20230411, end: 20230623
  2. HUMIRA [Suspect]
     Active Substance: ADALIMUMAB
     Indication: Colitis ulcerative
     Dosage: STRENGTH: 40 MG
     Route: 058
     Dates: start: 20230512, end: 20230512
  3. HUMIRA [Suspect]
     Active Substance: ADALIMUMAB
     Dosage: STRENGTH: 80 MG
     Route: 058
     Dates: start: 20230711, end: 20230809
  4. MESALAMINE [Concomitant]
     Active Substance: MESALAMINE
     Indication: Colitis ulcerative
     Dosage: 4800 MILLIGRAM
     Route: 048
     Dates: start: 20230216, end: 20230309
  5. MESALAMINE [Concomitant]
     Active Substance: MESALAMINE
     Indication: Colitis ulcerative
     Dosage: 4800 MILLIGRAM
     Route: 048
     Dates: start: 20230421
  6. MESALAMINE [Concomitant]
     Active Substance: MESALAMINE
     Indication: Colitis ulcerative
     Dosage: 2400 MILLIGRAM
     Route: 048
     Dates: start: 20230310, end: 20230420
  7. PREDNISOLONE [Concomitant]
     Active Substance: PREDNISOLONE
     Indication: Colitis ulcerative
     Dosage: 7.5 MILLIGRAM
     Route: 048
     Dates: start: 20230624, end: 20230630
  8. PREDNISOLONE [Concomitant]
     Active Substance: PREDNISOLONE
     Indication: Colitis ulcerative
     Dosage: 20 MILLIGRAM
     Route: 048
     Dates: start: 20230526, end: 20230602
  9. PREDNISOLONE [Concomitant]
     Active Substance: PREDNISOLONE
     Indication: Colitis ulcerative
     Dosage: 35 MILLIGRAM
     Route: 048
     Dates: start: 20230509, end: 20230513
  10. PREDNISOLONE [Concomitant]
     Active Substance: PREDNISOLONE
     Indication: Colitis ulcerative
     Dosage: 15 MILLIGRAM
     Route: 048
     Dates: start: 20230603, end: 20230609
  11. PREDNISOLONE [Concomitant]
     Active Substance: PREDNISOLONE
     Indication: Colitis ulcerative
     Dosage: 10 MILLIGRAM
     Route: 048
     Dates: start: 20230617, end: 20230623
  12. PREDNISOLONE [Concomitant]
     Active Substance: PREDNISOLONE
     Indication: Colitis ulcerative
     Dosage: 12.5 MILLIGRAM
     Route: 048
     Dates: start: 20230610, end: 20230616
  13. PREDNISOLONE [Concomitant]
     Active Substance: PREDNISOLONE
     Indication: Colitis ulcerative
     Dosage: 2.5 MILLIGRAM
     Route: 048
     Dates: start: 20230708, end: 20230714
  14. PREDNISOLONE [Concomitant]
     Active Substance: PREDNISOLONE
     Indication: Colitis ulcerative
     Dosage: 5 MILLIGRAM
     Route: 048
     Dates: start: 20230701, end: 20230707
  15. PREDNISOLONE [Concomitant]
     Active Substance: PREDNISOLONE
     Indication: Colitis ulcerative
     Dosage: 60 MILLIGRAM
     Route: 048
     Dates: start: 20230427, end: 20230503
  16. PREDNISOLONE [Concomitant]
     Active Substance: PREDNISOLONE
     Indication: Colitis ulcerative
     Dosage: 40 MILLIGRAM
     Route: 048
     Dates: start: 20230504, end: 20230508
  17. PREDNISOLONE [Concomitant]
     Active Substance: PREDNISOLONE
     Indication: Colitis ulcerative
     Dosage: 30 MILLIGRAM
     Route: 048
     Dates: start: 20230514, end: 20230525

REACTIONS (3)
  - Colitis ulcerative [Recovering/Resolving]
  - Frequent bowel movements [Unknown]
  - Melaena [Unknown]

NARRATIVE: CASE EVENT DATE: 20230421
